FAERS Safety Report 6917417-3 (Version None)
Quarter: 2010Q3

REPORT INFORMATION
  Report Type: 
  Country: None (occurrence: None)
  Receive Date: 20100810
  Receipt Date: 20100727
  Transmission Date: 20110219
  Serious: Yes (Other)
  Sender: FDA-Public Use
  Company Number: US-BAYER-201022837NA

PATIENT
  Age: 24 Year
  Sex: Female

DRUGS (1)
  1. MIRENA [Suspect]
     Indication: CONTRACEPTION
     Dosage: FREQUENCY: CONTINUOUS
     Route: 015
     Dates: start: 20070101

REACTIONS (8)
  - ABORTION SPONTANEOUS [None]
  - AMENORRHOEA [None]
  - BLOOD PRESSURE INCREASED [None]
  - INFECTION [None]
  - PREGNANCY WITH CONTRACEPTIVE DEVICE [None]
  - PYREXIA [None]
  - VAGINAL HAEMORRHAGE [None]
  - VOMITING [None]
